FAERS Safety Report 10759553 (Version 2)
Quarter: 2015Q1

REPORT INFORMATION
  Report Type: Spontaneous
  Country: US (occurrence: US)
  Receive Date: 20150203
  Receipt Date: 20150313
  Transmission Date: 20150721
  Serious: Yes (Other)
  Sender: FDA-Public Use
  Company Number: US-JAZZ-2014-US-014758

PATIENT
  Age: 57 Year
  Sex: Male

DRUGS (6)
  1. PROZAC [Concomitant]
     Active Substance: FLUOXETINE HYDROCHLORIDE
     Indication: OBSESSIVE-COMPULSIVE DISORDER
     Dosage: UNK
     Dates: end: 2013
  2. XYREM [Suspect]
     Active Substance: SODIUM OXYBATE
     Indication: NARCOLEPSY
     Dosage: 2.25 G, BID
     Route: 048
     Dates: start: 200901
  3. XYREM [Suspect]
     Active Substance: SODIUM OXYBATE
     Indication: INSOMNIA
     Dosage: DOSAGE ADJUSTMENTS
     Route: 048
  4. XYREM [Suspect]
     Active Substance: SODIUM OXYBATE
     Dosage: 5.25 G, BID
     Route: 048
     Dates: start: 201203
  5. PROZAC [Concomitant]
     Active Substance: FLUOXETINE HYDROCHLORIDE
     Indication: DEPRESSION
  6. CORTEF [Concomitant]
     Active Substance: HYDROCORTISONE
     Indication: ARTHROPATHY
     Dosage: UNK

REACTIONS (19)
  - Neck injury [Unknown]
  - Mucous membrane disorder [Unknown]
  - Vitamin D deficiency [Unknown]
  - Weight decreased [Not Recovered/Not Resolved]
  - Homocysteine urine present [Unknown]
  - Joint injury [Unknown]
  - Rosacea [Unknown]
  - Hypertension [Recovered/Resolved]
  - Gout [Not Recovered/Not Resolved]
  - Insulin resistance [Not Recovered/Not Resolved]
  - Liver function test abnormal [Unknown]
  - Fall [Recovered/Resolved]
  - Depression [Recovered/Resolved]
  - Influenza [Unknown]
  - Prostate cancer [Recovering/Resolving]
  - Tremor [Unknown]
  - Weight increased [Unknown]
  - Psychomotor retardation [Unknown]
  - Prescribed overdose [Unknown]

NARRATIVE: CASE EVENT DATE: 2012
